FAERS Safety Report 9837917 (Version 3)
Quarter: 2014Q1

REPORT INFORMATION
  Report Type: Spontaneous
  Country: JP (occurrence: JP)
  Receive Date: 20140123
  Receipt Date: 20140217
  Transmission Date: 20141002
  Serious: Yes (Life-Threatening, Hospitalization, Other)
  Sender: FDA-Public Use
  Company Number: JP-PFIZER INC-2013365563

PATIENT
  Age: 83 Year
  Sex: Female

DRUGS (22)
  1. LYRICA [Suspect]
     Indication: POST HERPETIC NEURALGIA
     Dosage: 25 MG, DAILY
     Route: 048
     Dates: start: 20131217, end: 20131218
  2. AMARYL [Suspect]
     Indication: DIABETES MELLITUS
     Dosage: 1 MG, 1X/DAY
     Route: 048
  3. GLACTIV [Suspect]
     Indication: DIABETES MELLITUS
     Dosage: 25 MG, 1X/DAY
     Route: 048
  4. SELBEX [Concomitant]
     Dosage: UNK
     Route: 048
  5. LASIX [Concomitant]
     Indication: POLYURIA
     Dosage: 20 MG, 1X/DAY
     Route: 048
  6. LIVALO [Concomitant]
     Indication: HYPERCHOLESTEROLAEMIA
     Dosage: 1 MG, 1X/DAY
     Route: 048
  7. PARIET [Concomitant]
     Dosage: 10 MG, 1X/DAY
     Route: 048
  8. CEROCRAL [Concomitant]
     Dosage: 60 MG, 3X/DAY
     Route: 048
  9. LENDORMIN [Concomitant]
     Dosage: UNK
     Route: 048
  10. MICARDIS [Concomitant]
     Indication: HYPERTENSION
     Dosage: 20 MG, 2X/DAY
     Route: 048
  11. ARTIST [Concomitant]
     Indication: HYPERTENSION
     Dosage: 2.5 MG, 1X/DAY
     Route: 048
  12. BAYASPIRIN [Concomitant]
     Indication: ANTIPLATELET THERAPY
     Dosage: 100 MG, 1X/DAY
     Route: 048
  13. SENNOSIDE A [Concomitant]
     Indication: CONSTIPATION
     Dosage: UNK
     Route: 048
  14. LOXONIN [Concomitant]
     Indication: HEADACHE
     Dosage: 1 DF, 1X/DAY
     Route: 048
     Dates: start: 20131128, end: 20131128
  15. LOXONIN [Concomitant]
     Indication: POST HERPETIC NEURALGIA
     Dosage: 60 MG, 2X/DAY
     Route: 048
     Dates: start: 20131129, end: 20131210
  16. BROTIZOLAM [Concomitant]
     Indication: INSOMNIA
     Dosage: 0.25 MG, 1X/DAY
     Route: 048
  17. MARZULENE S [Concomitant]
     Route: 048
  18. ZOVIRAX [Concomitant]
     Route: 047
  19. ARASENA A [Concomitant]
     Route: 048
  20. FAMVIR [Concomitant]
     Indication: POST HERPETIC NEURALGIA
     Dosage: 250 MG, 1X/DAY
     Route: 048
     Dates: start: 20131203, end: 20131210
  21. OSTELUC [Concomitant]
     Indication: POST HERPETIC NEURALGIA
     Dosage: 200 MG, 2X/DAY
     Route: 048
     Dates: start: 20131210, end: 20131217
  22. VOLTAREN [Concomitant]
     Indication: POST HERPETIC NEURALGIA
     Dosage: 25 MG, 2X/DAY
     Route: 048
     Dates: start: 20131217

REACTIONS (5)
  - Hypoglycaemia [Recovered/Resolved]
  - Hypoglycaemic coma [Unknown]
  - Pneumonia aspiration [Unknown]
  - Feeling abnormal [Unknown]
  - Somnolence [Unknown]
